FAERS Safety Report 5766547-0 (Version None)
Quarter: 2008Q2

REPORT INFORMATION
  Report Type: 
  Country: None (occurrence: None)
  Receive Date: 20080612
  Receipt Date: 20080605
  Transmission Date: 20081010
  Serious: Yes (Hospitalization)
  Sender: FDA-Public Use
  Company Number: AU-SP-2008-00031

PATIENT
  Age: 3 Year
  Sex: Female
  Weight: 14 kg

DRUGS (8)
  1. MERIEUX INACTIVATED RABIES VACCINE 2.5 IU [Suspect]
     Indication: IMMUNISATION
     Route: 030
     Dates: start: 20071115
  2. TYPHIM VI [Suspect]
     Indication: IMMUNISATION
     Route: 030
     Dates: start: 20071122
  3. JE-VAX [Suspect]
     Indication: IMMUNISATION
     Route: 058
     Dates: start: 20071122
  4. TUBERSOL [Suspect]
     Indication: TUBERCULIN TEST
     Route: 065
     Dates: start: 20071126
  5. TICE BCG [Suspect]
     Indication: IMMUNISATION
     Route: 065
     Dates: start: 20071129
  6. HAVRIX [Suspect]
     Indication: IMMUNISATION
     Route: 065
     Dates: start: 20071115
  7. RABIPUR [Suspect]
     Indication: IMMUNISATION
     Route: 030
     Dates: start: 20071122
  8. M-M-R II [Suspect]
     Route: 065
     Dates: start: 20071129

REACTIONS (1)
  - ENCEPHALITIS [None]
